FAERS Safety Report 9373649 (Version 1)
Quarter: 2013Q2

REPORT INFORMATION
  Report Type: Spontaneous
  Country: FR (occurrence: FR)
  Receive Date: 20130627
  Receipt Date: 20130627
  Transmission Date: 20140414
  Serious: Yes (Other)
  Sender: FDA-Public Use
  Company Number: FR-RB-055312-13

PATIENT
  Sex: Female

DRUGS (1)
  1. SUBUTEX [Suspect]
     Indication: DRUG DEPENDENCE
     Dosage: UNKNOWN DOSAGE
     Route: 048

REACTIONS (2)
  - Exposure during pregnancy [Recovered/Resolved]
  - Premature delivery [Recovered/Resolved]
